FAERS Safety Report 9307073 (Version 2)
Quarter: 2013Q2

REPORT INFORMATION
  Report Type: Spontaneous
  Country: US (occurrence: US)
  Receive Date: 20130523
  Receipt Date: 20130619
  Transmission Date: 20140414
  Serious: Yes (Disabling, Other)
  Sender: FDA-Public Use
  Company Number: US-ELI_LILLY_AND_COMPANY-US201305005019

PATIENT
  Age: 58 Year
  Sex: Female
  Weight: 75.9 kg

DRUGS (14)
  1. FORTEO [Suspect]
     Indication: OSTEOPOROSIS
     Dosage: UNK, QD
     Route: 058
     Dates: start: 20130312
  2. LASIX [Concomitant]
     Dosage: 20 MG, QD
  3. NEURONTIN [Concomitant]
     Dosage: 300 MG, BID
  4. LOSARTAN [Concomitant]
  5. DILTIAZEM [Concomitant]
     Dosage: 120 MG, QD
  6. CALCIUM [Concomitant]
  7. MAGNESIUM OXIDE [Concomitant]
  8. VITAMIN D3 [Concomitant]
     Dosage: 1 DF, QD
  9. CRANBERRY [Concomitant]
     Dosage: 500 MG, PRN
  10. BENADRYL                           /00000402/ [Concomitant]
     Dosage: 25 MG, QD
  11. FISH OIL [Concomitant]
     Dosage: 1200 MG, BID
  12. IBUPROFEN [Concomitant]
     Dosage: 200 MG, QD
  13. MECLIZINE [Concomitant]
     Dosage: 25 MG, PRN
  14. MULTIVITAMIN [Concomitant]
     Dosage: 1 DF, QD

REACTIONS (1)
  - Tachycardia [Recovered/Resolved]
